FAERS Safety Report 18856390 (Version 1)
Quarter: 2021Q1

REPORT INFORMATION
  Report Type: Spontaneous
  Country: US (occurrence: US)
  Receive Date: 20210207
  Receipt Date: 20210207
  Transmission Date: 20210420
  Serious: No
  Sender: FDA-Public Use
  Company Number: US-PERRIGO-20US015732

PATIENT

DRUGS (1)
  1. TRETINOIN. [Suspect]
     Active Substance: TRETINOIN
     Indication: WRONG PRODUCT ADMINISTERED
     Dosage: UNKNOWN, UNKNOWN
     Route: 061
     Dates: start: 202010, end: 202010

REACTIONS (4)
  - Application site erosion [Unknown]
  - Application site irritation [Unknown]
  - Wrong product administered [Recovered/Resolved]
  - Product dispensing error [Recovered/Resolved]

NARRATIVE: CASE EVENT DATE: 202010
